FAERS Safety Report 24053751 (Version 1)
Quarter: 2024Q3

REPORT INFORMATION
  Report Type: Spontaneous
  Country: US (occurrence: US)
  Receive Date: 20240705
  Receipt Date: 20240705
  Transmission Date: 20241017
  Serious: No
  Sender: AMGEN
  Company Number: US-AMGEN-USASP2024130149

PATIENT
  Age: 74 Year
  Sex: Female

DRUGS (3)
  1. REPATHA [Suspect]
     Active Substance: EVOLOCUMAB
     Indication: Cardiac disorder
     Dosage: 140 MILLIGRAM, Q2WK (EVERY 2 WEEKS)
     Route: 058
     Dates: start: 20240502
  2. REPATHA [Suspect]
     Active Substance: EVOLOCUMAB
     Indication: Bundle branch block left
     Dosage: 140 MILLIGRAM, Q2WK (EVERY 2 WEEKS)
     Route: 058
  3. WEGOVY [Concomitant]
     Active Substance: SEMAGLUTIDE
     Indication: Product used for unknown indication
     Route: 065

REACTIONS (3)
  - Product communication issue [Unknown]
  - Device difficult to use [Unknown]
  - Drug dose omission by device [Unknown]

NARRATIVE: CASE EVENT DATE: 20240627
